FAERS Safety Report 11708137 (Version 1)
Quarter: 2015Q4

REPORT INFORMATION
  Report Type: Spontaneous
  Country: US (occurrence: US)
  Receive Date: 20151104
  Receipt Date: 20151104
  Transmission Date: 20160304
  Serious: No
  Sender: FDA-Public Use
  Company Number: US-ELI_LILLY_AND_COMPANY-US201108004057

PATIENT
  Age: 54 Year
  Sex: Female

DRUGS (6)
  1. CELEXA [Concomitant]
     Active Substance: CITALOPRAM HYDROBROMIDE
     Dosage: 20 MG, UNK
  2. GABAPENTIN. [Concomitant]
     Active Substance: GABAPENTIN
     Dosage: 300 MG, UNK
  3. ALCOHOL. [Concomitant]
     Active Substance: ALCOHOL
  4. OPIOIDS [Concomitant]
     Active Substance: UNSPECIFIED INGREDIENT
  5. FORTEO [Suspect]
     Active Substance: TERIPARATIDE
     Indication: OSTEOPOROSIS
     Dosage: 20 UG, QD
     Route: 065
  6. TRAZODONE [Concomitant]
     Active Substance: TRAZODONE HYDROCHLORIDE
     Dosage: 200 MG, UNK

REACTIONS (2)
  - Alcohol rehabilitation [Not Recovered/Not Resolved]
  - Drug rehabilitation [Not Recovered/Not Resolved]

NARRATIVE: CASE EVENT DATE: 20110727
